FAERS Safety Report 19054000 (Version 2)
Quarter: 2021Q2

REPORT INFORMATION
  Report Type: Report from Study
  Country: None (occurrence: US)
  Receive Date: 20210324
  Receipt Date: 20210407
  Transmission Date: 20210717
  Serious: Yes (Other)
  Sender: FDA-Public Use
  Company Number: US-ABBVIE-21K-163-3827403-00

PATIENT
  Age: 84 Year
  Sex: Female
  Weight: 53.57 kg

DRUGS (1)
  1. RINVOQ [Suspect]
     Active Substance: UPADACITINIB
     Indication: RHEUMATOID ARTHRITIS
     Route: 048
     Dates: start: 2020, end: 202101

REACTIONS (13)
  - Arthralgia [Not Recovered/Not Resolved]
  - Shoulder deformity [Not Recovered/Not Resolved]
  - Humerus fracture [Not Recovered/Not Resolved]
  - Limb deformity [Not Recovered/Not Resolved]
  - Malaise [Not Recovered/Not Resolved]
  - Bone deformity [Unknown]
  - Mobility decreased [Not Recovered/Not Resolved]
  - Bone disorder [Unknown]
  - Hemiplegia [Unknown]
  - Post procedural complication [Not Recovered/Not Resolved]
  - Loss of personal independence in daily activities [Unknown]
  - Swelling [Not Recovered/Not Resolved]
  - Fatigue [Not Recovered/Not Resolved]

NARRATIVE: CASE EVENT DATE: 202011
